FAERS Safety Report 25063608 (Version 1)
Quarter: 2025Q1

REPORT INFORMATION
  Report Type: Spontaneous
  Country: IT (occurrence: IT)
  Receive Date: 20250311
  Receipt Date: 20250311
  Transmission Date: 20250408
  Serious: Yes (Other)
  Sender: RANBAXY
  Company Number: IT-SUN PHARMACEUTICAL INDUSTRIES LTD-2025RR-498906

PATIENT
  Age: 82 Year
  Sex: Female

DRUGS (4)
  1. LEVETIRACETAM [Suspect]
     Active Substance: LEVETIRACETAM
     Indication: Myoclonus
     Dosage: 500 MILLIGRAM, TID
  2. DIAZEPAM [Suspect]
     Active Substance: DIAZEPAM
     Indication: Myoclonus
     Route: 040
  3. CLONAZEPAM [Suspect]
     Active Substance: CLONAZEPAM
     Indication: Myoclonus
     Dosage: 2 MILLIGRAM, TID
     Route: 048
  4. CLONAZEPAM [Suspect]
     Active Substance: CLONAZEPAM
     Dosage: 1 MILLIGRAM, TID
     Route: 048

REACTIONS (2)
  - Sedation [Unknown]
  - Therapeutic product effect incomplete [Unknown]
